FAERS Safety Report 4514843-7 (Version None)
Quarter: 2004Q4

REPORT INFORMATION
  Report Type: 
  Country: None (occurrence: None)
  Receive Date: 20041201
  Receipt Date: 20041119
  Transmission Date: 20050328
  Serious: Yes (Other)
  Sender: FDA-Public Use
  Company Number: NO-BRISTOL-MYERS SQUIBB COMPANY-12771010

PATIENT
  Age: 79 Year
  Sex: Female

DRUGS (6)
  1. PENTREXYL [Suspect]
     Indication: PNEUMONIA
     Dates: end: 20040216
  2. PENTREXYL [Suspect]
     Indication: PULMONARY EMBOLISM
     Dates: end: 20040216
  3. FRUSEMIDE [Suspect]
     Indication: PULMONARY EMBOLISM
  4. FRUSEMIDE [Suspect]
     Indication: PNEUMONIA
  5. CLAFORAN [Suspect]
     Indication: PULMONARY EMBOLISM
     Dates: end: 20040216
  6. CLAFORAN [Suspect]
     Indication: PNEUMONIA
     Dates: end: 20040216

REACTIONS (6)
  - BLISTER [None]
  - CONJUNCTIVITIS [None]
  - ERYTHEMA MULTIFORME [None]
  - PYREXIA [None]
  - RASH MACULO-PAPULAR [None]
  - TOXIC EPIDERMAL NECROLYSIS [None]
